FAERS Safety Report 11459516 (Version 1)
Quarter: 2015Q3

REPORT INFORMATION
  Report Type: Spontaneous
  Country: US (occurrence: US)
  Receive Date: 20150904
  Receipt Date: 20150904
  Transmission Date: 20151125
  Serious: No
  Sender: FDA-Public Use
  Company Number: US-TARO-2014TAR00293

PATIENT
  Age: 71 Year
  Sex: Male
  Weight: 81.63 kg

DRUGS (2)
  1. WARFARIN SODIUM TABLETS USP 5MG [Suspect]
     Active Substance: WARFARIN SODIUM
     Dosage: 5 MG, 5X/WEEK
     Route: 048
     Dates: start: 20140820
  2. WARFARIN SODIUM TABLETS USP 5MG [Suspect]
     Active Substance: WARFARIN SODIUM
     Indication: DEEP VEIN THROMBOSIS
     Dosage: 5 MG, 6X/WEEK
     Route: 048
     Dates: start: 2003, end: 20140820

REACTIONS (2)
  - Product quality issue [Not Recovered/Not Resolved]
  - International normalised ratio increased [Recovered/Resolved]

NARRATIVE: CASE EVENT DATE: 2013
